FAERS Safety Report 12604465 (Version 1)
Quarter: 2016Q3

REPORT INFORMATION
  Report Type: Spontaneous
  Country: US (occurrence: US)
  Receive Date: 20160728
  Receipt Date: 20160728
  Transmission Date: 20161109
  Serious: No
  Sender: FDA-Public Use
  Company Number: PHEH2016US017903

PATIENT
  Sex: Female

DRUGS (3)
  1. MULTI VIT [Concomitant]
     Indication: PRODUCT USED FOR UNKNOWN INDICATION
     Route: 065
  2. ILARIS [Suspect]
     Active Substance: CANAKINUMAB
     Indication: PRODUCT USED FOR UNKNOWN INDICATION
     Dosage: EVERY EIGHT WEEKS
     Route: 065
     Dates: start: 201604
  3. CAMRESE [Concomitant]
     Active Substance: ETHINYL ESTRADIOL\LEVONORGESTREL
     Indication: PRODUCT USED FOR UNKNOWN INDICATION
     Route: 065

REACTIONS (8)
  - Weight increased [Unknown]
  - Diarrhoea [Unknown]
  - Vulvovaginal pain [Unknown]
  - Chest discomfort [Unknown]
  - Stomatitis [Unknown]
  - Chest pain [Unknown]
  - Breast pain [Unknown]
  - Pyrexia [Unknown]
